FAERS Safety Report 9354338 (Version 3)
Quarter: 2013Q4

REPORT INFORMATION
  Report Type: Report from Study
  Country: CH (occurrence: CH)
  Receive Date: 20130618
  Receipt Date: 20131027
  Transmission Date: 20140711
  Serious: No
  Sender: FDA-Public Use
  Company Number: CH-US-EMD SERONO, INC.-7217423

PATIENT
  Sex: Female

DRUGS (1)
  1. REBIF [Suspect]
     Indication: MULTIPLE SCLEROSIS
     Route: 058
     Dates: start: 201304, end: 201306

REACTIONS (2)
  - Dyspnoea [Recovering/Resolving]
  - Nephropathy [Recovered/Resolved]
